FAERS Safety Report 7644349-8 (Version None)
Quarter: 2011Q3

REPORT INFORMATION
  Report Type: 
  Country: None (occurrence: None)
  Receive Date: 20110729
  Receipt Date: 20110718
  Transmission Date: 20111222
  Serious: Yes (Hospitalization, Other)
  Sender: FDA-Public Use
  Company Number: US-ELI_LILLY_AND_COMPANY-US201008003302

PATIENT
  Sex: Female

DRUGS (7)
  1. MICARDIS [Concomitant]
  2. HYDROCHLOROTHIAZIDE [Concomitant]
  3. ROCEPHIN [Concomitant]
  4. BYETTA [Suspect]
     Indication: TYPE 2 DIABETES MELLITUS
     Dosage: UNK
     Dates: start: 20070806, end: 20090301
  5. VERAPAMIL [Concomitant]
     Dosage: 180 MG, QD
  6. SYNTHROID [Concomitant]
  7. AMARYL [Concomitant]

REACTIONS (3)
  - PANCREATITIS ACUTE [None]
  - PANCREATITIS CHRONIC [None]
  - PANCREATITIS [None]
